FAERS Safety Report 23080986 (Version 2)
Quarter: 2023Q4

REPORT INFORMATION
  Report Type: Spontaneous
  Country: CN (occurrence: None)
  Receive Date: 20231018
  Receipt Date: 20231208
  Transmission Date: 20240110
  Serious: Yes (Life-Threatening, Hospitalization, Other)
  Sender: FDA-Public Use
  Company Number: CN-ROCHE-3438107

PATIENT
  Age: 67 Year
  Sex: Male
  Weight: 64.9 kg

DRUGS (9)
  1. TECENTRIQ [Suspect]
     Active Substance: ATEZOLIZUMAB
     Indication: Hepatic cancer
     Route: 065
     Dates: start: 20230908
  2. AVASTIN [Suspect]
     Active Substance: BEVACIZUMAB
     Indication: Hepatic cancer
     Route: 065
     Dates: start: 20230908
  3. METHYLPREDNISOLONE [Concomitant]
     Active Substance: METHYLPREDNISOLONE
     Route: 041
     Dates: start: 20230924, end: 20230924
  4. METHYLPREDNISOLONE [Concomitant]
     Active Substance: METHYLPREDNISOLONE
     Route: 041
     Dates: start: 20230926
  5. ACYCLOVIR [Concomitant]
     Active Substance: ACYCLOVIR
     Route: 041
  6. POSACONAZOLE [Concomitant]
     Active Substance: POSACONAZOLE
     Route: 048
  7. SULFAMETHOXAZOLE [Concomitant]
     Active Substance: SULFAMETHOXAZOLE
     Route: 048
  8. PROPOFOL [Concomitant]
     Active Substance: PROPOFOL
  9. FENTANYL [Concomitant]
     Active Substance: FENTANYL\FENTANYL CITRATE
     Dosage: 7.5 UG/H

REACTIONS (15)
  - Hyperlactacidaemia [Unknown]
  - Pyrexia [Recovered/Resolved]
  - Respiratory arrest [Not Recovered/Not Resolved]
  - Respiratory failure [Unknown]
  - Encephalomyelitis [Unknown]
  - Fatigue [Recovered/Resolved]
  - Pneumonia [Not Recovered/Not Resolved]
  - Loss of consciousness [Not Recovered/Not Resolved]
  - Urinary retention [Unknown]
  - Muscular weakness [Unknown]
  - Electrolyte imbalance [Unknown]
  - Hyponatraemia [Unknown]
  - Pneumonia fungal [Unknown]
  - Hypocalcaemia [Unknown]
  - Hypoalbuminaemia [Unknown]

NARRATIVE: CASE EVENT DATE: 20230916
